FAERS Safety Report 9315210 (Version 2)
Quarter: 2013Q2

REPORT INFORMATION
  Report Type: Spontaneous
  Country: US (occurrence: US)
  Receive Date: 20130529
  Receipt Date: 20130617
  Transmission Date: 20140414
  Serious: Yes (Hospitalization, Other)
  Sender: FDA-Public Use
  Company Number: US-B.I. PHARMACEUTICALS,INC./RIDGEFIELD-2013-BI-14956BP

PATIENT
  Age: 76 Year
  Sex: Female

DRUGS (4)
  1. AGGRENOX [Suspect]
     Indication: CEREBROVASCULAR ACCIDENT PROPHYLAXIS
     Dosage: STRENGTH: 25 MG / 200 MG; DAILY DOSE: 50 MG/400 MG
     Route: 048
     Dates: start: 200810
  2. AGGRENOX [Suspect]
     Dosage: STRENGTH: 25 MG / 200 MG;
     Route: 048
     Dates: start: 2011
  3. DILANTIN [Concomitant]
     Indication: CONVULSION
     Dosage: 100 MG
     Route: 048
     Dates: start: 201304
  4. SYNTHROID [Concomitant]
     Indication: HYPOTHYROIDISM
     Dosage: 0.1 MG
     Route: 048
     Dates: start: 2001

REACTIONS (7)
  - Arrhythmia [Not Recovered/Not Resolved]
  - Transient ischaemic attack [Recovered/Resolved]
  - Breast cancer [Unknown]
  - Breast cancer [Recovered/Resolved]
  - Gout [Recovered/Resolved]
  - Adverse drug reaction [Recovered/Resolved]
  - Gingival disorder [Not Recovered/Not Resolved]
